FAERS Safety Report 6802840-8 (Version None)
Quarter: 2010Q2

REPORT INFORMATION
  Report Type: 
  Country: None (occurrence: None)
  Receive Date: 20100628
  Receipt Date: 20100615
  Transmission Date: 20101027
  Serious: Yes (Hospitalization, Disabling, Other)
  Sender: FDA-Public Use
  Company Number: PHEH2007US03038

PATIENT
  Sex: Female
  Weight: 74.376 kg

DRUGS (18)
  1. AREDIA [Suspect]
     Dosage: 90 MG, UNK
     Dates: end: 20060725
  2. AREDIA [Suspect]
     Dosage: 30 MG
  3. HYDROCHLOROTHIAZIDE [Concomitant]
  4. ZELNORM                                 /USA/ [Concomitant]
  5. TOPROL-XL [Concomitant]
     Dosage: 25 MG, QD
  6. ERLOTINIB [Concomitant]
     Dosage: 150 MG, QD
  7. TYLENOL [Concomitant]
  8. TARCEVA [Concomitant]
     Dosage: 150 MG, QD
  9. PHENERGAN ^AVENTIS PHARMA^ [Concomitant]
  10. DARVON [Concomitant]
     Dosage: UNK
  11. AUGMENTAN ORAL [Concomitant]
  12. ATIVAN [Concomitant]
  13. ALLEGRA [Concomitant]
  14. REGLAN [Concomitant]
  15. KEFLEX [Concomitant]
  16. ZOFRAN [Concomitant]
  17. ZITHROMAX [Concomitant]
  18. CELEXA [Concomitant]
     Dosage: 40 MG, QD
     Dates: start: 20031023

REACTIONS (26)
  - ANAEMIA [None]
  - ANXIETY [None]
  - ARTHRALGIA [None]
  - BLOOD CALCIUM DECREASED [None]
  - BONE PAIN [None]
  - CLOSED FRACTURE MANIPULATION [None]
  - COMPRESSION FRACTURE [None]
  - DECREASED INTEREST [None]
  - DEHYDRATION [None]
  - DIARRHOEA [None]
  - DISABILITY [None]
  - FALL [None]
  - GENERAL PHYSICAL HEALTH DETERIORATION [None]
  - HEADACHE [None]
  - HIP FRACTURE [None]
  - MALAISE [None]
  - METASTASES TO BONE [None]
  - OESOPHAGEAL ULCER [None]
  - OESOPHAGEAL ULCER HAEMORRHAGE [None]
  - OESOPHAGITIS [None]
  - OSTEONECROSIS OF JAW [None]
  - PAIN [None]
  - RADIOTHERAPY [None]
  - REHABILITATION THERAPY [None]
  - TRANSFUSION [None]
  - WEIGHT BEARING DIFFICULTY [None]
